FAERS Safety Report 4614838-9 (Version None)
Quarter: 2005Q1

REPORT INFORMATION
  Report Type: 
  Country: None (occurrence: None)
  Receive Date: 20050318
  Receipt Date: 20050318
  Transmission Date: 20050727
  Serious: Yes (Other)
  Sender: FDA-Public Use
  Company Number: None

PATIENT
  Age: 69 Year
  Sex: Female

DRUGS (11)
  1. DOXORUBICIN [Suspect]
     Indication: BREAST CANCER
  2. ASPIRING [Concomitant]
  3. GLYBURIDE [Concomitant]
  4. METFORMIN [Concomitant]
  5. AMLODIPINE [Concomitant]
  6. PRAVASTATIN [Concomitant]
  7. HYDROCHLOROTHIAZIDE [Concomitant]
  8. IRBESARTAN [Concomitant]
  9. POTASSIUM CHLORIDE [Concomitant]
  10. ALBUTEROL [Concomitant]
  11. CELECOXIB [Concomitant]

REACTIONS (1)
  - TONGUE HAEMORRHAGE [None]
